FAERS Safety Report 7464835-3 (Version None)
Quarter: 2011Q2

REPORT INFORMATION
  Report Type: 
  Country: None (occurrence: None)
  Receive Date: 20110509
  Receipt Date: 20110425
  Transmission Date: 20111010
  Serious: Yes (Other)
  Sender: FDA-Public Use
  Company Number: US-CELGENEUS-163-20785-11032646

PATIENT
  Age: 74 Year
  Sex: Male
  Weight: 99 kg

DRUGS (18)
  1. ISOSORBIDE DINITRATE [Concomitant]
     Route: 065
  2. VITAMIN B [Concomitant]
     Route: 065
  3. INDOCIN [Concomitant]
     Route: 065
  4. LIPITOR [Concomitant]
     Route: 065
  5. TRICOR [Concomitant]
     Route: 065
  6. THALOMID [Suspect]
     Dosage: 100 MILLIGRAM
     Route: 048
     Dates: start: 20090325
  7. MELPHALAN HYDROCHLORIDE [Suspect]
     Dosage: 100 MILLIGRAM
     Route: 048
     Dates: start: 20090325, end: 20100213
  8. TERAZOSIN HCL [Concomitant]
     Route: 065
  9. DIOVAN [Concomitant]
     Route: 065
  10. GUAIFENESIN [Concomitant]
     Route: 065
  11. MELPHALAN HYDROCHLORIDE [Suspect]
     Dosage: 9 MILLIGRAM/SQ. METER
     Route: 048
     Dates: start: 20090325, end: 20100213
  12. ASPIRIN [Concomitant]
     Dosage: 325 MILLIGRAM
     Route: 048
  13. THALOMID [Suspect]
     Dosage: 100 MILLIGRAM
     Route: 048
     Dates: start: 20100309, end: 20100310
  14. NIACIN [Concomitant]
     Route: 065
  15. NITROGLYCERIN [Concomitant]
     Route: 065
  16. CATAPRES [Concomitant]
     Route: 065
  17. NORVASC [Concomitant]
     Route: 065
  18. CLONIDINE [Concomitant]
     Route: 065

REACTIONS (1)
  - LEUKAEMIA GRANULOCYTIC [None]
